FAERS Safety Report 21564623 (Version 1)
Quarter: 2022Q4

REPORT INFORMATION
  Report Type: Spontaneous
  Country: IT (occurrence: IT)
  Receive Date: 20221108
  Receipt Date: 20221108
  Transmission Date: 20230113
  Serious: Yes (Hospitalization, Other)
  Sender: FDA-Public Use
  Company Number: None

PATIENT
  Age: 56 Year
  Sex: Male
  Weight: 105 kg

DRUGS (2)
  1. DUPIXENT [Suspect]
     Active Substance: DUPILUMAB
     Indication: Asthma
     Dosage: 200MG / 2 WEEKS
     Route: 058
     Dates: start: 20210806, end: 20221006
  2. DICLOFENAC [Concomitant]
     Active Substance: DICLOFENAC
     Dosage: SELF-ADMINISTRATION OF DICLOFENAC FOR GONALGIA FROM 03/10 TO 8/10

REACTIONS (4)
  - Thrombocytopenia [Recovering/Resolving]
  - Spontaneous haematoma [Recovering/Resolving]
  - Gingival bleeding [Recovering/Resolving]
  - Epistaxis [Recovering/Resolving]

NARRATIVE: CASE EVENT DATE: 20221003
